FAERS Safety Report 6889185-5 (Version None)
Quarter: 2010Q3

REPORT INFORMATION
  Report Type: 
  Country: None (occurrence: None)
  Receive Date: 20100730
  Receipt Date: 20080116
  Transmission Date: 20110219
  Serious: No
  Sender: FDA-Public Use
  Company Number: US-PFIZER INC-2007099777

PATIENT
  Sex: Male
  Weight: 72.7 kg

DRUGS (2)
  1. LIPITOR [Suspect]
     Indication: BLOOD CHOLESTEROL INCREASED
     Dates: start: 20010101, end: 20071107
  2. PRILOSEC [Concomitant]

REACTIONS (4)
  - LOCALISED INFECTION [None]
  - PRURITUS [None]
  - RASH [None]
  - UNEVALUABLE EVENT [None]
